FAERS Safety Report 7589734-8 (Version None)
Quarter: 2011Q3

REPORT INFORMATION
  Report Type: 
  Country: None (occurrence: None)
  Receive Date: 20110705
  Receipt Date: 20110622
  Transmission Date: 20111222
  Serious: Yes (Life-Threatening, Hospitalization, Other)
  Sender: FDA-Public Use
  Company Number: JP-BAYER-201013577BYL

PATIENT
  Age: 57 Year
  Sex: Female
  Weight: 52 kg

DRUGS (19)
  1. CYCLOPHOSPHAMIDE [Concomitant]
     Route: 041
     Dates: start: 20100608, end: 20100608
  2. RAMELTEON [Concomitant]
     Indication: PROPHYLAXIS OF NAUSEA AND VOMITING
     Dosage: 0.1 MG, QD
     Route: 048
     Dates: start: 20100519, end: 20100521
  3. KYTRIL [Concomitant]
     Dosage: 3 MG (DAILY DOSE), , IV DRIP
     Route: 041
     Dates: start: 20100608, end: 20100608
  4. DEXAMETHASONE SODIUM PHOSPHATE [Concomitant]
     Indication: PRODUCT USED FOR UNKNOWN INDICATION
     Dosage: 19.8 MG, QD
     Route: 041
     Dates: start: 20100529, end: 20100529
  5. RAMELTEON [Concomitant]
     Dosage: 0.1 MG (DAILY DOSE), , ORAL
     Route: 048
     Dates: start: 20100609, end: 20100611
  6. CIPROFLOXACIN HCL [Suspect]
     Indication: FEBRILE NEUTROPENIA
     Dosage: 400 MG, TID
     Route: 048
     Dates: start: 20100601, end: 20100607
  7. EPIRUBICIN HYDROCHLORIDE [Concomitant]
     Dosage: 150 MG (DAILY DOSE), , IV DRIP
     Route: 041
     Dates: start: 20100529, end: 20100529
  8. FLUOROURACIL [Concomitant]
     Route: 041
     Dates: start: 20100608, end: 20100608
  9. KYTRIL [Concomitant]
     Indication: PRODUCT USED FOR UNKNOWN INDICATION
     Dosage: 6 MG, QD
     Route: 041
     Dates: start: 20100529, end: 20100529
  10. FLUOROURACIL [Concomitant]
     Dosage: 750 MG (DAILY DOSE), , IV DRIP
     Route: 041
     Dates: start: 20100529, end: 20100529
  11. EPIRUBICIN HYDROCHLORIDE [Concomitant]
     Route: 041
     Dates: start: 20100608, end: 20100608
  12. CYCLOPHOSPHAMIDE [Concomitant]
     Dosage: 750 MG (DAILY DOSE), , IV DRIP
     Route: 041
     Dates: start: 20100529, end: 20100529
  13. DECADRON [Concomitant]
     Indication: PROPHYLAXIS OF NAUSEA AND VOMITING
     Dosage: 8 MG, QD
     Route: 048
     Dates: start: 20100519, end: 20100521
  14. CYCLOPHOSPHAMIDE [Concomitant]
     Indication: BREAST CANCER
     Dosage: 750 MG, QD
     Route: 041
     Dates: start: 20100518, end: 20100518
  15. CIPROFLOXACIN HCL [Suspect]
     Route: 048
     Dates: start: 20100614, end: 20100620
  16. EPIRUBICIN HYDROCHLORIDE [Concomitant]
     Indication: BREAST CANCER
     Dosage: 150 MG, QD
     Route: 041
     Dates: start: 20100518, end: 20100518
  17. FLUOROURACIL [Concomitant]
     Indication: BREAST CANCER
     Dosage: 750 MG, QD
     Route: 041
     Dates: start: 20100518, end: 20100518
  18. DECADRON [Concomitant]
     Dosage: 8 MG (DAILY DOSE), , ORAL
     Route: 048
     Dates: start: 20100609, end: 20100611
  19. DEXAMETHASONE SODIUM PHOSPHATE [Concomitant]
     Dosage: 19.8 MG (DAILY DOSE), , IV DRIP
     Route: 041
     Dates: start: 20100608, end: 20100608

REACTIONS (2)
  - TUBULOINTERSTITIAL NEPHRITIS [None]
  - RENAL FAILURE ACUTE [None]
